FAERS Safety Report 14638599 (Version 2)
Quarter: 2018Q2

REPORT INFORMATION
  Report Type: Report from Study
  Country: US (occurrence: US)
  Receive Date: 20180314
  Receipt Date: 20180504
  Transmission Date: 20180711
  Serious: Yes (Death, Hospitalization)
  Sender: FDA-Public Use
  Company Number: US-UCBSA-2018009786

PATIENT
  Age: 76 Year
  Sex: Female

DRUGS (2)
  1. ROTIGOTINE [Suspect]
     Active Substance: ROTIGOTINE
     Indication: PARKINSON^S DISEASE
     Dosage: LOWER DOSES
     Route: 062
  2. ROTIGOTINE [Suspect]
     Active Substance: ROTIGOTINE
     Dosage: 8 MG, ONCE DAILY (QD)
     Route: 062
     Dates: end: 20180222

REACTIONS (3)
  - Cerebrovascular accident [Fatal]
  - Aneurysm [Not Recovered/Not Resolved]
  - Aneurysm ruptured [Fatal]

NARRATIVE: CASE EVENT DATE: 201706
